FAERS Safety Report 9877236 (Version 2)
Quarter: 2014Q1

REPORT INFORMATION
  Report Type: Spontaneous
  Country: BE (occurrence: BE)
  Receive Date: 20140206
  Receipt Date: 20140214
  Transmission Date: 20141002
  Serious: Yes (Other)
  Sender: FDA-Public Use
  Company Number: BE-ROCHE-1343503

PATIENT
  Age: 8 Year
  Sex: Male

DRUGS (3)
  1. RIVOTRIL [Suspect]
     Indication: EPILEPSY
     Route: 065
     Dates: start: 2010, end: 201311
  2. TOPAMAX [Concomitant]
     Indication: EPILEPSY
  3. LAMICTAL [Concomitant]
     Indication: EPILEPSY

REACTIONS (6)
  - Disturbance in attention [Recovered/Resolved]
  - Developmental delay [Unknown]
  - Aggression [Unknown]
  - Irritability [Unknown]
  - Nervousness [Unknown]
  - Memory impairment [Unknown]
